FAERS Safety Report 13551713 (Version 1)
Quarter: 2017Q2

REPORT INFORMATION
  Report Type: Spontaneous
  Country: AU (occurrence: AU)
  Receive Date: 20170516
  Receipt Date: 20170516
  Transmission Date: 20170830
  Serious: Yes (Death, Other)
  Sender: FDA-Public Use
  Company Number: AU-UNICHEM LABORATORIES LIMITED-UCM201705-000106

PATIENT
  Age: 54 Year
  Sex: Female

DRUGS (3)
  1. ZOPICLONE [Suspect]
     Active Substance: ZOPICLONE
  2. QUETIAPINE. [Suspect]
     Active Substance: QUETIAPINE
  3. LAMOTRIGINE. [Suspect]
     Active Substance: LAMOTRIGINE

REACTIONS (4)
  - Cardiac arrest [Fatal]
  - Intentional overdose [Fatal]
  - Hypotension [Unknown]
  - Distributive shock [Unknown]
